FAERS Safety Report 5858639-2 (Version None)
Quarter: 2008Q3

REPORT INFORMATION
  Report Type: 
  Country: None (occurrence: None)
  Receive Date: 20080826
  Receipt Date: 20080812
  Transmission Date: 20090109
  Serious: Yes (Other)
  Sender: FDA-Public Use
  Company Number: RO-ROCHE-581795

PATIENT
  Age: 38 Year
  Sex: Male

DRUGS (5)
  1. PEGASYS [Suspect]
     Dosage: 2 DOSES
     Route: 065
  2. PEGASYS [Suspect]
     Route: 065
  3. PEGASYS [Suspect]
     Dosage: MONOTHERAPY
     Route: 065
  4. RIBAVIRIN [Suspect]
     Route: 065
  5. NEUPOGEN [Concomitant]
     Dosage: WEEKLY

REACTIONS (2)
  - CYTOMEGALOVIRUS INFECTION [None]
  - PLATELET COUNT DECREASED [None]
